FAERS Safety Report 18969121 (Version 6)
Quarter: 2021Q2

REPORT INFORMATION
  Report Type: Spontaneous
  Country: BE (occurrence: BE)
  Receive Date: 20210304
  Receipt Date: 20210515
  Transmission Date: 20210717
  Serious: Yes (Other)
  Sender: FDA-Public Use
  Company Number: BE-ACCORD-218908

PATIENT
  Age: 69 Year
  Sex: Male

DRUGS (1)
  1. SERTRALINE [Suspect]
     Active Substance: SERTRALINE HYDROCHLORIDE
     Indication: DEPRESSION
     Route: 048
     Dates: start: 201606, end: 201708

REACTIONS (1)
  - Eosinophilic pneumonia chronic [Recovered/Resolved]

NARRATIVE: CASE EVENT DATE: 201704
